FAERS Safety Report 16397931 (Version 1)
Quarter: 2019Q2

REPORT INFORMATION
  Report Type: Spontaneous
  Country: US (occurrence: US)
  Receive Date: 20190430
  Receipt Date: 20190430
  Transmission Date: 20190711
  Serious: Yes (Hospitalization)
  Sender: FDA-Public Use
  Company Number: None

PATIENT
  Age: 76 Year
  Sex: Female
  Weight: 53.3 kg

DRUGS (1)
  1. ARIMIDEX [Suspect]
     Active Substance: ANASTROZOLE
     Dates: end: 20190415

REACTIONS (6)
  - Dehydration [None]
  - Hypokalaemia [None]
  - Hypotension [None]
  - Confusional state [None]
  - Leukocytosis [None]
  - Hyponatraemia [None]

NARRATIVE: CASE EVENT DATE: 20190416
